FAERS Safety Report 8591841-8 (Version None)
Quarter: 2012Q3

REPORT INFORMATION
  Report Type: 
  Country: None (occurrence: None)
  Receive Date: 20120814
  Receipt Date: 20120807
  Transmission Date: 20120928
  Serious: Yes (Hospitalization)
  Sender: FDA-Public Use
  Company Number: US-JNJFOC-20120803859

PATIENT
  Age: 38 Year
  Sex: Female

DRUGS (3)
  1. VITAMIN D [Concomitant]
     Indication: MALNUTRITION
     Route: 065
  2. NUCYNTA [Suspect]
     Indication: PAIN
     Dosage: ONCE EVERY 6 HOURS
     Route: 048
     Dates: start: 20120101, end: 20120101
  3. ZANAFLEX [Concomitant]
     Indication: MUSCLE SPASMS
     Route: 065

REACTIONS (4)
  - ABDOMINAL PAIN [None]
  - CEREBROVASCULAR ACCIDENT [None]
  - PALLOR [None]
  - ILEUS PARALYTIC [None]
